FAERS Safety Report 13581560 (Version 2)
Quarter: 2018Q1

REPORT INFORMATION
  Report Type: Report from Study
  Country: DE (occurrence: DE)
  Receive Date: 20170525
  Receipt Date: 20180222
  Transmission Date: 20180508
  Serious: Yes (Other)
  Sender: FDA-Public Use
  Company Number: DE-TEVA-770034GER

PATIENT
  Age: 48 Year
  Sex: Male
  Weight: 71.9 kg

DRUGS (6)
  1. TRISENOX [Suspect]
     Active Substance: ARSENIC TRIOXIDE
     Indication: ACUTE PROMYELOCYTIC LEUKAEMIA
     Dosage: DATE OF LAST DOSE PRIOR TO SAE: 12-MAY-2017
     Route: 042
     Dates: start: 20170411
  2. CASPOFUNGIN [Concomitant]
     Active Substance: CASPOFUNGIN
     Indication: FUNGAL INFECTION
     Dosage: 50 MILLIGRAM DAILY;
     Route: 042
     Dates: start: 20170509, end: 20170515
  3. IDARUBICIN [Suspect]
     Active Substance: IDARUBICIN
     Indication: ACUTE PROMYELOCYTIC LEUKAEMIA
     Dosage: DATE OF LAST DOSE PRIOR TO SAE: 09-APR-2017
     Route: 042
     Dates: start: 20170407
  4. ATRA [Suspect]
     Active Substance: TRETINOIN
     Indication: ACUTE PROMYELOCYTIC LEUKAEMIA
     Dosage: DATE OF LAST DOSE PRIOR TO SAE: 12-MAY-2017
     Route: 048
     Dates: start: 20170406
  5. HYDROMORPHON [Concomitant]
     Active Substance: HYDROMORPHONE
     Indication: PAIN
     Dosage: 16 MILLIGRAM DAILY;
     Route: 048
     Dates: start: 20170407, end: 20170515
  6. VANCOMYCIN [Concomitant]
     Active Substance: VANCOMYCIN
     Indication: FUNGAL INFECTION
     Dosage: 2 GRAM DAILY;
     Route: 042
     Dates: start: 20170412, end: 20170715

REACTIONS (8)
  - Acute promyelocytic leukaemia differentiation syndrome [Recovered/Resolved]
  - Pericardial effusion [Recovered/Resolved]
  - Somnolence [Recovered/Resolved]
  - International normalised ratio increased [Recovered/Resolved]
  - Antithrombin III decreased [Recovered/Resolved]
  - Post procedural haemorrhage [Recovered/Resolved]
  - Visual impairment [Recovered/Resolved]
  - Pleural effusion [Recovered/Resolved]

NARRATIVE: CASE EVENT DATE: 20170512
